FAERS Safety Report 25974043 (Version 1)
Quarter: 2025Q4

REPORT INFORMATION
  Report Type: Spontaneous
  Country: US (occurrence: None)
  Receive Date: 20251028
  Receipt Date: 20251028
  Transmission Date: 20260117
  Serious: Yes (Death, Life-Threatening)
  Sender: FDA-CTU
  Company Number: None

PATIENT
  Age: 80 Year
  Sex: Male

DRUGS (3)
  1. CEFEPIME HYDROCHLORIDE [Suspect]
     Active Substance: CEFEPIME HYDROCHLORIDE
     Dosage: FREQUENCY : ONCE;?
     Route: 042
     Dates: start: 20250816, end: 20250816
  2. VANCOMYCIN [Suspect]
     Active Substance: VANCOMYCIN
     Indication: Infection
  3. MEROPENEM [Suspect]
     Active Substance: MEROPENEM

REACTIONS (5)
  - Seizure [None]
  - Blood glucose increased [None]
  - Sepsis [None]
  - Anaemia [None]
  - End stage renal disease [None]

NARRATIVE: CASE EVENT DATE: 20250816
